FAERS Safety Report 20055222 (Version 3)
Quarter: 2021Q4

REPORT INFORMATION
  Report Type: Spontaneous
  Country: US (occurrence: US)
  Receive Date: 20211110
  Receipt Date: 20211222
  Transmission Date: 20220303
  Serious: No
  Sender: FDA-Public Use
  Company Number: US-BAUSCH-BL-2021-026973

PATIENT
  Age: 74 Year
  Sex: Male
  Weight: 81.266 kg

DRUGS (3)
  1. NEOMYCIN AND POLYMYXIN B SULFATES AND HYDROCORTISONE [Suspect]
     Active Substance: HYDROCORTISONE\NEOMYCIN SULFATE\POLYMYXIN B SULFATE
     Indication: Ear infection
     Dosage: EAR SOLUTION; 4 DROPS IN ONE EAR 4 TIMES A DAY
     Route: 001
     Dates: start: 20210725, end: 20210730
  2. NEOMYCIN AND POLYMYXIN B SULFATES AND HYDROCORTISONE [Suspect]
     Active Substance: HYDROCORTISONE\NEOMYCIN SULFATE\POLYMYXIN B SULFATE
     Dosage: 4 DROPS IN THE AFFECTED EAR 3 TO 4 TIMES A DAY BY HIS DOCTOR FOR 10 DAYS
     Route: 001
     Dates: start: 20211029, end: 20211102
  3. NEOMYCIN AND POLYMYXIN B SULFATES AND HYDROCORTISONE [Suspect]
     Active Substance: HYDROCORTISONE\NEOMYCIN SULFATE\POLYMYXIN B SULFATE
     Dosage: RESTARTED
     Route: 001
     Dates: start: 2021

REACTIONS (5)
  - Instillation site pruritus [Not Recovered/Not Resolved]
  - Malabsorption from administration site [Not Recovered/Not Resolved]
  - Product dose omission issue [Unknown]
  - Product packaging quantity issue [Unknown]
  - Therapy interrupted [Unknown]

NARRATIVE: CASE EVENT DATE: 20210101
